FAERS Safety Report 17816640 (Version 1)
Quarter: 2020Q2

REPORT INFORMATION
  Report Type: Spontaneous
  Country: FR (occurrence: FR)
  Receive Date: 20200522
  Receipt Date: 20200522
  Transmission Date: 20200714
  Serious: Yes (Hospitalization)
  Sender: FDA-Public Use
  Company Number: FR-TEVA-2020-FR-1238586

PATIENT
  Age: 34 Year
  Sex: Male
  Weight: 96 kg

DRUGS (9)
  1. LYRICA [Suspect]
     Active Substance: PREGABALIN
     Indication: DIABETIC NEUROPATHY
     Route: 048
     Dates: start: 20170718
  2. ALPRAZOLAM. [Concomitant]
     Active Substance: ALPRAZOLAM
  3. PARACETAMOL [Suspect]
     Active Substance: ACETAMINOPHEN
     Indication: DIABETIC NEUROPATHY
     Route: 048
     Dates: start: 20170711
  4. LANTUS [Concomitant]
     Active Substance: INSULIN GLARGINE
  5. HUMALOG [Concomitant]
     Active Substance: INSULIN LISPRO
  6. TRAMADOL (CHLORHYDRATE DE) [Suspect]
     Active Substance: TRAMADOL HYDROCHLORIDE
     Indication: DIABETIC NEUROPATHY
     Dates: start: 20170719, end: 20181227
  7. ZOLPIDEM [Concomitant]
     Active Substance: ZOLPIDEM TARTRATE
  8. NOCTAMIDE 1 MG, COMPRIME SECABLE [Suspect]
     Active Substance: LORMETAZEPAM
     Indication: DEPRESSION
     Route: 048
     Dates: start: 20170719, end: 20180608
  9. JANUVIA [Suspect]
     Active Substance: SITAGLIPTIN PHOSPHATE
     Indication: TYPE 2 DIABETES MELLITUS
     Route: 048
     Dates: start: 20170717, end: 20180403

REACTIONS (1)
  - Oedematous pancreatitis [Recovered/Resolved]

NARRATIVE: CASE EVENT DATE: 201710
